FAERS Safety Report 6138004-3 (Version None)
Quarter: 2009Q1

REPORT INFORMATION
  Report Type: 
  Country: None (occurrence: None)
  Receive Date: 20090331
  Receipt Date: 20090319
  Transmission Date: 20090719
  Serious: Yes (Hospitalization)
  Sender: FDA-Public Use
  Company Number: US-ROCHE-622871

PATIENT
  Sex: Male

DRUGS (4)
  1. PEG-INTERFERON A-2A (RO 25-8310) [Suspect]
     Indication: HEPATITIS C
     Dosage: OTHER INDICATION: STAGE 4 CIRRHOSIS.
     Route: 065
  2. PEG-INTERFERON A-2A (RO 25-8310) [Suspect]
     Dosage: OTHER INDICATION: STAGE 4 CIRRHOSIS.
     Route: 065
  3. PEG-INTERFERON A-2A (RO 25-8310) [Suspect]
     Dosage: OTHER INDICATION: STAGE 4 CIRRHOSIS.
     Route: 065
     Dates: start: 20090318
  4. RIBASPHERE [Suspect]
     Indication: HEPATITIS C
     Dosage: OTHER INDICATION: STAGE 4 CIRRHOSIS, DIVIDED DOSES.
     Route: 065
     Dates: start: 20090318

REACTIONS (2)
  - BLOOD CREATININE INCREASED [None]
  - LIVER DISORDER [None]
